FAERS Safety Report 9462349 (Version 1)
Quarter: 2013Q3

REPORT INFORMATION
  Report Type: Spontaneous
  Country: IT (occurrence: IT)
  Receive Date: 20130816
  Receipt Date: 20130816
  Transmission Date: 20140515
  Serious: Yes (Hospitalization)
  Sender: FDA-Public Use
  Company Number: IT-TEVA-425332ISR

PATIENT
  Age: 90 Year
  Sex: Female

DRUGS (6)
  1. TORASEMIDE [Suspect]
     Dosage: 1 DOSAGE FORMS DAILY;
     Route: 048
     Dates: start: 20130101, end: 20130729
  2. SINTROM [Concomitant]
  3. MICROSER [Concomitant]
  4. TRINIPLAS 10MG/DIE [Concomitant]
  5. ATENOLOLO [Concomitant]
  6. GABAPENTIN [Concomitant]

REACTIONS (3)
  - Hypokalaemia [Recovering/Resolving]
  - Hyponatraemia [Recovering/Resolving]
  - Vertigo [Recovering/Resolving]
